FAERS Safety Report 8624077-2 (Version None)
Quarter: 2012Q3

REPORT INFORMATION
  Report Type: 
  Country: None (occurrence: None)
  Receive Date: 20120824
  Receipt Date: 20120824
  Transmission Date: 20120928
  Serious: Yes (Hospitalization)
  Sender: FDA-Public Use
  Company Number: None

PATIENT
  Sex: Female

DRUGS (3)
  1. PEGASYS [Suspect]
     Indication: HEPATITIS C
     Dosage: 90 MCG QW SQ
     Route: 058
     Dates: start: 20120530
  2. RIBAVIRIN [Suspect]
     Indication: HEPATITIS C
     Dosage: 400MG BID PO
     Route: 048
     Dates: start: 20120630
  3. INCIVEK [Concomitant]

REACTIONS (4)
  - FAECAL INCONTINENCE [None]
  - FALL [None]
  - INCOHERENT [None]
  - RED BLOOD CELL COUNT DECREASED [None]
